FAERS Safety Report 11253913 (Version 4)
Quarter: 2015Q3

REPORT INFORMATION
  Report Type: Report from Study
  Country: US (occurrence: US)
  Receive Date: 20150709
  Receipt Date: 20150807
  Transmission Date: 20151125
  Serious: Yes (Hospitalization, Other)
  Sender: FDA-Public Use
  Company Number: US-BIOGENIDEC-2015BI093465

PATIENT
  Age: 46 Year
  Sex: Male

DRUGS (1)
  1. TYSABRI [Suspect]
     Active Substance: NATALIZUMAB
     Indication: MULTIPLE SCLEROSIS
     Route: 042
     Dates: start: 20090722

REACTIONS (7)
  - Pancreatitis [Recovered/Resolved]
  - Drug specific antibody present [Unknown]
  - Colitis ischaemic [Recovered/Resolved]
  - Oesophageal spasm [Recovered/Resolved]
  - Dysphagia [Not Recovered/Not Resolved]
  - Hepatic lesion [Recovered/Resolved]
  - Renal disorder [Recovered/Resolved]

NARRATIVE: CASE EVENT DATE: 201503
